FAERS Safety Report 10110699 (Version 1)
Quarter: 2014Q2

REPORT INFORMATION
  Report Type: Spontaneous
  Country: US (occurrence: None)
  Receive Date: 20140424
  Receipt Date: 20140424
  Transmission Date: 20141212
  Serious: No
  Sender: FDA-Public Use
  Company Number: None

PATIENT
  Age: 29 Year
  Sex: Female
  Weight: 91.63 kg

DRUGS (2)
  1. DULOXETINE [Suspect]
     Indication: MAJOR DEPRESSION
     Dosage: 1 CAPSULE
     Route: 048
     Dates: start: 20140311, end: 20140423
  2. DULOXETINE [Suspect]
     Indication: FIBROMYALGIA
     Dosage: 1 CAPSULE
     Route: 048
     Dates: start: 20140311, end: 20140423

REACTIONS (10)
  - Depression [None]
  - Sleep disorder [None]
  - Fatigue [None]
  - Feeling abnormal [None]
  - Anger [None]
  - Anxiety [None]
  - Tachyphrenia [None]
  - Crying [None]
  - Heart rate increased [None]
  - Tremor [None]
